FAERS Safety Report 4607622-3 (Version None)
Quarter: 2005Q1

REPORT INFORMATION
  Report Type: 
  Country: None (occurrence: None)
  Receive Date: 20050309
  Receipt Date: 20050225
  Transmission Date: 20050727
  Serious: Yes (Death)
  Sender: FDA-Public Use
  Company Number: DE-2005-002761

PATIENT
  Age: 93 Year
  Sex: Female

DRUGS (1)
  1. ULTRAVIST 370 [Suspect]
     Indication: ARTERIOGRAM CORONARY
     Dosage: 1 DOSE
     Dates: start: 20050201, end: 20050201

REACTIONS (5)
  - ARTERIOSPASM CORONARY [None]
  - BRADYCARDIA [None]
  - CARDIAC PROCEDURE COMPLICATION [None]
  - CONTRAST MEDIA REACTION [None]
  - PROCEDURAL HYPOTENSION [None]
